FAERS Safety Report 4687167-5 (Version None)
Quarter: 2005Q2

REPORT INFORMATION
  Report Type: 
  Country: None (occurrence: None)
  Receive Date: 20050607
  Receipt Date: 20050525
  Transmission Date: 20051028
  Serious: Yes (Other)
  Sender: FDA-Public Use
  Company Number: USA050290745

PATIENT
  Age: 51 Year
  Sex: Female
  Weight: 93 kg

DRUGS (5)
  1. CYMBALTA [Suspect]
     Indication: DEPRESSION
     Dosage: 30 MG
     Dates: start: 20050209, end: 20050209
  2. PREMARIN [Concomitant]
  3. WELLBUTRIN SR [Concomitant]
  4. CELEXA [Concomitant]
  5. LEVOXYL [Concomitant]

REACTIONS (3)
  - BLOOD PRESSURE INCREASED [None]
  - HEART RATE INCREASED [None]
  - WRONG TECHNIQUE IN DRUG USAGE PROCESS [None]
